FAERS Safety Report 19506360 (Version 1)
Quarter: 2021Q3

REPORT INFORMATION
  Report Type: Spontaneous
  Country: US (occurrence: US)
  Receive Date: 20210708
  Receipt Date: 20210708
  Transmission Date: 20211014
  Serious: Yes (Other)
  Sender: FDA-Public Use
  Company Number: None

PATIENT
  Age: 60 Year
  Sex: Female
  Weight: 81 kg

DRUGS (10)
  1. TOPAMAX [Concomitant]
     Active Substance: TOPIRAMATE
  2. FLONASE SENSIMIST ALLERGY RELIEF [Concomitant]
     Active Substance: FLUTICASONE FUROATE
  3. IRON [Concomitant]
     Active Substance: IRON
  4. ALLEGRA [Concomitant]
     Active Substance: FEXOFENADINE HYDROCHLORIDE
  5. FEMHRT [Concomitant]
     Active Substance: ETHINYL ESTRADIOL\NORETHINDRONE ACETATE
  6. LOSARTAN. [Concomitant]
     Active Substance: LOSARTAN
  7. ALBUTEROL. [Concomitant]
     Active Substance: ALBUTEROL
  8. MONSEL [Suspect]
     Active Substance: FERRIC SUBSULFATE
     Indication: COLPOSCOPY
     Dosage: ?          OTHER STRENGTH:PASTE?;QUANTITY:1 ? PASTE APPLIED;OTHER FREQUENCY:ONCE;?
     Route: 067
     Dates: start: 20210621, end: 20210621
  9. CLOBETASOL PROPIONATE OINTMENT [Concomitant]
     Active Substance: CLOBETASOL PROPIONATE
  10. VITAMIN D, B12  BCOMPLEX [Concomitant]

REACTIONS (2)
  - Unevaluable event [None]
  - Burning sensation [None]

NARRATIVE: CASE EVENT DATE: 20210621
